FAERS Safety Report 13745755 (Version 3)
Quarter: 2017Q3

REPORT INFORMATION
  Report Type: Spontaneous
  Country: US (occurrence: US)
  Receive Date: 20170712
  Receipt Date: 20170828
  Transmission Date: 20171127
  Serious: No
  Sender: FDA-Public Use
  Company Number: US-BAYER-2017-133200

PATIENT
  Age: 75 Year
  Sex: Male
  Weight: 61 kg

DRUGS (1)
  1. ALEVE [Suspect]
     Active Substance: NAPROXEN SODIUM
     Indication: PAIN

REACTIONS (4)
  - Device use issue [Unknown]
  - Abdominal discomfort [Unknown]
  - Therapeutic product ineffective for unapproved indication [None]
  - Product use complaint [None]

NARRATIVE: CASE EVENT DATE: 20170711
